FAERS Safety Report 5118600-2 (Version None)
Quarter: 2006Q4

REPORT INFORMATION
  Report Type: 
  Country: None (occurrence: None)
  Receive Date: 20061002
  Receipt Date: 20060907
  Transmission Date: 20070319
  Serious: Yes (Other)
  Sender: FDA-Public Use
  Company Number: CA-GLAXOSMITHKLINE-A0619620A

PATIENT
  Age: 75 Year
  Sex: Male
  Weight: 86.4 kg

DRUGS (2)
  1. AVODART [Suspect]
     Indication: DRUG USE FOR UNKNOWN INDICATION
     Route: 048
     Dates: start: 20060201, end: 20060301
  2. PROSCAR [Concomitant]

REACTIONS (1)
  - TESTICULAR SWELLING [None]
